FAERS Safety Report 6546955-0 (Version None)
Quarter: 2010Q1

REPORT INFORMATION
  Report Type: 
  Country: None (occurrence: None)
  Receive Date: 20100122
  Receipt Date: 20100120
  Transmission Date: 20100710
  Serious: Yes (Other)
  Sender: FDA-Public Use
  Company Number: A0836578A

PATIENT
  Sex: Female

DRUGS (6)
  1. TYKERB [Suspect]
     Dosage: 1250MG PER DAY
     Route: 048
     Dates: start: 20091120
  2. XELODA [Concomitant]
     Dosage: 1500MG TWICE PER DAY
     Route: 065
     Dates: end: 20100115
  3. SYNTHROID [Concomitant]
     Route: 065
  4. CALTRATE+VITAMIN D [Concomitant]
     Route: 065
  5. DIOVAN [Concomitant]
     Route: 065
  6. CALCIUM [Concomitant]
     Route: 065

REACTIONS (4)
  - ASTHENIA [None]
  - ERYTHEMA [None]
  - FATIGUE [None]
  - PALMAR-PLANTAR ERYTHRODYSAESTHESIA SYNDROME [None]
